FAERS Safety Report 18538785 (Version 1)
Quarter: 2020Q4

REPORT INFORMATION
  Report Type: Spontaneous
  Country: US (occurrence: US)
  Receive Date: 20201124
  Receipt Date: 20201124
  Transmission Date: 20210114
  Serious: No
  Sender: FDA-Public Use
  Company Number: US-CIPLA LTD.-2020US00701

PATIENT

DRUGS (3)
  1. LISINOPRIL. [Concomitant]
     Active Substance: LISINOPRIL
     Indication: HYPERTENSION
     Dosage: 1.25 MILLIGRAM, QD
     Route: 065
     Dates: start: 2004
  2. LEVOTHYROXINE. [Concomitant]
     Active Substance: LEVOTHYROXINE
     Indication: THYROXINE DECREASED
     Dosage: UNK (STARTED 10-15 YEARS BACK)
     Route: 065
  3. GABAPENTIN. [Suspect]
     Active Substance: GABAPENTIN
     Indication: NEUROPATHY PERIPHERAL
     Dosage: 300 MILLIGRAM, QD
     Route: 048
     Dates: start: 201911

REACTIONS (4)
  - Oedema peripheral [Not Recovered/Not Resolved]
  - Blood pressure increased [Not Recovered/Not Resolved]
  - Fluid retention [Not Recovered/Not Resolved]
  - Weight increased [Not Recovered/Not Resolved]
